FAERS Safety Report 24430858 (Version 1)
Quarter: 2024Q4

REPORT INFORMATION
  Report Type: Spontaneous
  Country: US (occurrence: US)
  Receive Date: 20241014
  Receipt Date: 20241014
  Transmission Date: 20250115
  Serious: No
  Sender: APOTEX
  Company Number: US-APOTEX-2024AP011410

PATIENT
  Age: 75 Year
  Sex: Female

DRUGS (4)
  1. ERLOTINIB [Suspect]
     Active Substance: ERLOTINIB
     Indication: EGFR gene mutation
     Dosage: 150 MILLIGRAM, QD (THERAPY DURATION 2.5 MONTHS)
     Route: 065
  2. ERLOTINIB [Suspect]
     Active Substance: ERLOTINIB
     Indication: Non-small cell lung cancer
  3. BEVACIZUMAB [Concomitant]
     Active Substance: BEVACIZUMAB
     Indication: EGFR gene mutation
     Dosage: 15 MILLIGRAM/KILOGRAM
     Route: 065
  4. BEVACIZUMAB [Concomitant]
     Active Substance: BEVACIZUMAB
     Indication: Non-small cell lung cancer

REACTIONS (3)
  - Disease progression [Recovering/Resolving]
  - Paraesthesia [Recovered/Resolved]
  - Rash [Unknown]
